FAERS Safety Report 10485645 (Version 1)
Quarter: 2014Q4

REPORT INFORMATION
  Report Type: Spontaneous
  Country: DK (occurrence: DK)
  Receive Date: 20141001
  Receipt Date: 20141001
  Transmission Date: 20150528
  Serious: Yes (Hospitalization)
  Sender: FDA-Public Use
  Company Number: PHHY2014DK124651

PATIENT
  Age: 79 Year
  Sex: Female

DRUGS (13)
  1. IBUPROFEN. [Suspect]
     Active Substance: IBUPROFEN
     Indication: PAIN
     Dosage: 400 MG, TID
     Route: 048
     Dates: end: 20140830
  2. BONVIVA [Concomitant]
     Active Substance: IBANDRONATE SODIUM
  3. BRENTAN [Concomitant]
     Active Substance: HYDROCORTISONE\MICONAZOLE
  4. BRICANYL [Concomitant]
     Active Substance: TERBUTALINE SULFATE
  5. PREDNISOLON [Concomitant]
     Active Substance: PREDNISOLONE
     Indication: ILL-DEFINED DISORDER
     Dosage: UNK UKN, UNK
     Route: 048
     Dates: start: 20140830, end: 20140905
  6. PINEX [Concomitant]
     Active Substance: ACETAMINOPHEN
  7. SYMBICORT [Concomitant]
     Active Substance: BUDESONIDE\FORMOTEROL FUMARATE DIHYDRATE
  8. ASASANTIN [Suspect]
     Active Substance: ASPIRIN\DIPYRIDAMOLE
     Indication: CEREBROVASCULAR ACCIDENT
     Dosage: 1 DF, QD
     Route: 048
     Dates: start: 2006, end: 20140905
  9. BUDENOFALK [Concomitant]
     Active Substance: BUDESONIDE
  10. SPIRIVA [Concomitant]
     Active Substance: TIOTROPIUM BROMIDE MONOHYDRATE
  11. SERTRALINE HCL [Concomitant]
     Active Substance: SERTRALINE HYDROCHLORIDE
  12. HJERDYL [Suspect]
     Active Substance: ASPIRIN
     Indication: ARTERIOSCLEROSIS
     Dosage: 75 MG, QD
     Route: 048
  13. TRADOLAN [Concomitant]
     Active Substance: TRAMADOL

REACTIONS (5)
  - Vomiting [Unknown]
  - Faeces discoloured [Unknown]
  - Diarrhoea [Unknown]
  - Gastric ulcer haemorrhage [Unknown]
  - Pallor [Unknown]

NARRATIVE: CASE EVENT DATE: 20140831
